FAERS Safety Report 16419625 (Version 5)
Quarter: 2024Q2

REPORT INFORMATION
  Report Type: Other
  Country: PT (occurrence: PT)
  Receive Date: 20190612
  Receipt Date: 20240402
  Transmission Date: 20240716
  Serious: Yes (Hospitalization)
  Sender: FDA-Public Use
  Company Number: PT-ROCHE-2331264

PATIENT
  Age: 70 Year
  Sex: Female
  Weight: 54 kg

DRUGS (34)
  1. PERJETA [Suspect]
     Active Substance: PERTUZUMAB
     Indication: HER2 positive breast cancer
     Route: 042
     Dates: start: 20170608, end: 20180323
  2. HERCEPTIN [Suspect]
     Active Substance: TRASTUZUMAB
     Indication: HER2 positive breast cancer
     Route: 042
     Dates: start: 20170608, end: 20180323
  3. TAXOL [Suspect]
     Active Substance: PACLITAXEL
     Indication: HER2 positive breast cancer
     Route: 042
     Dates: start: 20170608, end: 20170622
  4. FASLODEX [Suspect]
     Active Substance: FULVESTRANT
     Indication: HER2 positive breast cancer
     Route: 030
     Dates: start: 20171102, end: 20190605
  5. METFORMIN [Concomitant]
     Active Substance: METFORMIN HYDROCHLORIDE
     Dosage: ONGOING = NOT CHECKED
     Dates: end: 20190614
  6. FERRIC CARBOXYMALTOSE [Concomitant]
     Active Substance: FERRIC CARBOXYMALTOSE
     Dosage: ONGOING = NOT CHECKED
     Dates: end: 20190614
  7. TAZOBACTAM [Concomitant]
     Active Substance: TAZOBACTAM
     Indication: Pulmonary embolism
     Dates: start: 20190507, end: 20190614
  8. PIPERACILLIN [Concomitant]
     Active Substance: PIPERACILLIN
     Indication: Pulmonary embolism
     Dates: start: 20190507, end: 20190614
  9. BISOPROLOL [Concomitant]
     Active Substance: BISOPROLOL\BISOPROLOL FUMARATE
     Indication: Ejection fraction decreased
     Dates: start: 20180802, end: 20190614
  10. PERINDOPRIL [Concomitant]
     Active Substance: PERINDOPRIL
     Indication: Ejection fraction decreased
     Dates: start: 20180426, end: 20190614
  11. ACETYLCYSTEINE [Concomitant]
     Active Substance: ACETYLCYSTEINE
     Dosage: ONGOING = NOT CHECKED
     Dates: start: 20190426, end: 20190501
  12. PANTOPRAZOLE [Concomitant]
     Active Substance: PANTOPRAZOLE
     Dosage: ONGOING = NOT CHECKED
     Dates: end: 20190614
  13. SODIUM PICOSULFATE [Concomitant]
     Active Substance: SODIUM PICOSULFATE
     Dosage: ONGOING = NOT CHECKED
     Dates: end: 20190614
  14. CHOLECALCIFEROL [Concomitant]
     Active Substance: CHOLECALCIFEROL
     Dosage: ONGOING = NOT CHECKED
     Dates: end: 20190614
  15. CALCIUM CARBONATE [Concomitant]
     Active Substance: CALCIUM CARBONATE
     Dosage: ONGOING = NOT CHECKED
     Dates: end: 20190614
  16. RIVAROXABAN [Concomitant]
     Active Substance: RIVAROXABAN
     Dosage: ONGOING = NOT CHECKED
     Dates: end: 20190614
  17. RISPERIDONE [Concomitant]
     Active Substance: RISPERIDONE
     Dosage: ONGOING = NOT CHECKED
     Dates: end: 20190614
  18. ISOPHANE INSULIN [Concomitant]
     Active Substance: INSULIN NOS
     Dosage: ONGOING = NOT CHECKED
     Dates: end: 20190614
  19. DEXAMETHASONE [Concomitant]
     Active Substance: DEXAMETHASONE
     Dosage: ONGOING = NOT CHECKED
     Dates: end: 20190614
  20. LOPERAMIDE [Concomitant]
     Active Substance: LOPERAMIDE
     Dosage: ONGOING = NOT CHECKED
     Dates: end: 20190614
  21. PREGABALIN [Concomitant]
     Active Substance: PREGABALIN
     Dosage: ONGOING = NOT CHECKED
     Dates: end: 20190614
  22. CEFUROXIME [Concomitant]
     Active Substance: CEFUROXIME
     Dosage: ONGOING = NOT CHECKED
     Dates: start: 20190418, end: 20190425
  23. CEFUROXIME [Concomitant]
     Active Substance: CEFUROXIME
     Dosage: ONGOING = NOT CHECKED
     Dates: start: 20190507, end: 20190515
  24. FLAVOXATE [Concomitant]
     Active Substance: FLAVOXATE
     Dosage: ONGOING = NOT CHECKED
     Dates: end: 20190614
  25. ZOLEDRONIC ACID [Concomitant]
     Active Substance: ZOLEDRONIC ACID
     Dates: start: 20171102, end: 20190614
  26. FOSFOMYCIN [Concomitant]
     Active Substance: FOSFOMYCIN
     Dosage: ONGOING = NOT CHECKED
     Dates: end: 20190614
  27. MIRTAZAPINE [Concomitant]
     Active Substance: MIRTAZAPINE
     Dosage: ONGOING = NOT CHECKED
     Dates: end: 20190614
  28. QUETIAPINE [Concomitant]
     Active Substance: QUETIAPINE
     Dosage: ONGOING = NOT CHECKED
     Dates: end: 20190614
  29. BUPROPION [Concomitant]
     Active Substance: BUPROPION
     Dosage: ONGOING = NOT CHECKED
     Dates: end: 20190614
  30. VALPROATE [Concomitant]
     Active Substance: VALPROIC ACID
     Dosage: ONGOING = NOT CHECKED
     Dates: end: 20190614
  31. FENOFIBRATE [Concomitant]
     Active Substance: FENOFIBRATE
     Dosage: ONGOING = NOT CHECKED
     Dates: end: 20190614
  32. PRAVASTATIN [Concomitant]
     Active Substance: PRAVASTATIN
     Dosage: ONGOING = NOT CHECKED
     Dates: end: 20190614
  33. INDAPAMIDE [Concomitant]
     Active Substance: INDAPAMIDE
     Dosage: ONGOING = NOT CHECKED
     Dates: end: 20190614
  34. DIFLUCORTOLONE VALERATE\ISOCONAZOLE NITRATE [Concomitant]
     Active Substance: DIFLUCORTOLONE VALERATE\ISOCONAZOLE NITRATE
     Dosage: ONGOING = NOT CHECKED
     Dates: end: 20190614

REACTIONS (1)
  - Pulmonary embolism [Not Recovered/Not Resolved]

NARRATIVE: CASE EVENT DATE: 20190507
